FAERS Safety Report 7201613-4 (Version None)
Quarter: 2010Q4

REPORT INFORMATION
  Report Type: 
  Country: None (occurrence: None)
  Receive Date: 20101229
  Receipt Date: 20101220
  Transmission Date: 20110411
  Serious: Yes (Hospitalization)
  Sender: FDA-Public Use
  Company Number: GB-TEVA-260979ISR

PATIENT
  Age: 80 Year
  Sex: Female
  Weight: 60 kg

DRUGS (1)
  1. HALOPERIDOL [Suspect]
     Indication: AGITATION
     Route: 048
     Dates: start: 20100820, end: 20101022

REACTIONS (1)
  - DEEP VEIN THROMBOSIS [None]
